FAERS Safety Report 5159492-5 (Version None)
Quarter: 2006Q4

REPORT INFORMATION
  Report Type: 
  Country: None (occurrence: None)
  Receive Date: 20061129
  Receipt Date: 20061120
  Transmission Date: 20070319
  Serious: Yes (Other)
  Sender: FDA-Public Use
  Company Number: PHBS2006JP18109

PATIENT
  Sex: Female

DRUGS (3)
  1. AREDIA [Suspect]
     Indication: METASTASES TO BONE
     Dosage: 90 MG, UNK
     Route: 042
     Dates: end: 20060601
  2. CHEMOTHERAPEUTICS,OTHER [Concomitant]
     Route: 065
  3. ZOMETA [Suspect]
     Indication: METASTASES TO BONE
     Dosage: 4 MG, UNK
     Route: 042
     Dates: start: 20060701, end: 20061101

REACTIONS (3)
  - IMPAIRED HEALING [None]
  - OSTEOMYELITIS [None]
  - TOOTH EXTRACTION [None]
